FAERS Safety Report 23532859 (Version 1)
Quarter: 2024Q1

REPORT INFORMATION
  Report Type: Spontaneous
  Country: US (occurrence: None)
  Receive Date: 20240216
  Receipt Date: 20240216
  Transmission Date: 20240409
  Serious: Yes (Hospitalization)
  Sender: FDA-Public Use
  Company Number: None

PATIENT
  Age: 62 Year
  Sex: Female
  Weight: 79.6 kg

DRUGS (2)
  1. DEXAMETHASONE [Suspect]
     Active Substance: DEXAMETHASONE
     Dates: end: 20240119
  2. LENALIDOMIDE [Suspect]
     Active Substance: LENALIDOMIDE
     Dates: end: 20240118

REACTIONS (7)
  - Abdominal pain [None]
  - Diarrhoea [None]
  - Pyrexia [None]
  - Colitis [None]
  - Bacterial infection [None]
  - Treatment delayed [None]
  - Therapy change [None]

NARRATIVE: CASE EVENT DATE: 20240122
